FAERS Safety Report 4548366-6 (Version None)
Quarter: 2004Q4

REPORT INFORMATION
  Report Type: 
  Country: None (occurrence: None)
  Receive Date: 20041227
  Receipt Date: 20040917
  Transmission Date: 20050328
  Serious: Yes (Death)
  Sender: FDA-Public Use
  Company Number: 04P-163-0273667-00

PATIENT
  Age: 60 Year
  Sex: Female

DRUGS (5)
  1. HUMIRA [Suspect]
     Indication: RHEUMATOID ARTHRITIS
     Dosage: 40 MG, SUBCUTANEOUS
     Route: 058
     Dates: start: 20031214
  2. ROFECOXIB [Concomitant]
  3. LEFLUNOMIDE [Concomitant]
  4. PREDNISONE [Concomitant]
  5. METHOTREXATE SODIUM [Concomitant]

REACTIONS (1)
  - DEATH [None]
